FAERS Safety Report 23064229 (Version 3)
Quarter: 2024Q3

REPORT INFORMATION
  Report Type: Report from Study
  Country: DE (occurrence: DE)
  Receive Date: 20231013
  Receipt Date: 20240709
  Transmission Date: 20241017
  Serious: Yes (Life-Threatening)
  Sender: MYLAN
  Company Number: DE-ROCHE-2022964

PATIENT
  Age: 78 Year
  Sex: Male
  Weight: 64 kg

DRUGS (9)
  1. RAMIPRIL [Suspect]
     Active Substance: RAMIPRIL
     Indication: Hypertension
     Dosage: 150 MILLIGRAM
     Route: 048
  2. AVASTIN [Suspect]
     Active Substance: BEVACIZUMAB
     Indication: Colon cancer metastatic
     Dosage: UNK
     Route: 042
  3. AVASTIN [Suspect]
     Active Substance: BEVACIZUMAB
     Dosage: UNK
     Route: 042
     Dates: start: 20090428, end: 20090428
  4. AVASTIN [Suspect]
     Active Substance: BEVACIZUMAB
     Dosage: 487.5 MILLIGRAM, PATIENT RECEIVED A TOTAL
     Route: 042
     Dates: start: 20090224, end: 20090428
  5. XELODA [Suspect]
     Active Substance: CAPECITABINE
     Indication: Colon cancer metastatic
     Dosage: 2000 MILLIGRAM/SQ. METER, 3700 MG WAS RECEIVED
     Route: 048
  6. XELODA [Suspect]
     Active Substance: CAPECITABINE
     Dosage: 2500 MG/SQ. METER (3700 MG WAS RECEIVED FROM DAY 1 UNTIL DAY 14 OF A CYCLE, LAST INTAKE WAS ON)
     Route: 048
  7. XELODA [Suspect]
     Active Substance: CAPECITABINE
     Dosage: 3700 MG (WAS RECEIVED FROM DAY 1 UNTIL DAY 14 OF A CYCLE, LAST INTAKE WAS ON 11-MAY-2009)
     Route: 048
     Dates: start: 20090224
  8. ALIZAPRIDE HYDROCHLORIDE [Concomitant]
     Active Substance: ALIZAPRIDE HYDROCHLORIDE
     Indication: Prophylaxis
     Dosage: 150 MILLIGRAM
     Route: 048
  9. ASPIRIN [Concomitant]
     Active Substance: ASPIRIN
     Dosage: 100 MILLIGRAM
     Route: 048

REACTIONS (3)
  - Nephrotic syndrome [Not Recovered/Not Resolved]
  - Renal impairment [Unknown]
  - Proteinuria [Unknown]

NARRATIVE: CASE EVENT DATE: 20090519
